FAERS Safety Report 14451501 (Version 2)
Quarter: 2020Q1

REPORT INFORMATION
  Report Type: Spontaneous
  Country: US (occurrence: US)
  Receive Date: 20180129
  Receipt Date: 20200206
  Transmission Date: 20200409
  Serious: Yes (Other)
  Sender: FDA-Public Use
  Company Number: US-ABBVIE-17K-163-2207246-00

PATIENT
  Sex: Male

DRUGS (6)
  1. ENBREL [Suspect]
     Active Substance: ETANERCEPT
     Route: 065
     Dates: start: 201608, end: 2016
  2. REPATHA [Suspect]
     Active Substance: EVOLOCUMAB
     Route: 065
     Dates: start: 2017
  3. REPATHA [Suspect]
     Active Substance: EVOLOCUMAB
     Indication: TYPE IIA HYPERLIPIDAEMIA
     Route: 065
     Dates: end: 2017
  4. ENBREL [Suspect]
     Active Substance: ETANERCEPT
     Indication: RHEUMATOID ARTHRITIS
     Route: 065
  5. HUMIRA [Suspect]
     Active Substance: ADALIMUMAB
     Indication: PRODUCT USED FOR UNKNOWN INDICATION
     Route: 058
     Dates: start: 2016, end: 2017
  6. HUMIRA [Suspect]
     Active Substance: ADALIMUMAB
     Route: 058
     Dates: start: 2018

REACTIONS (16)
  - Knee arthroplasty [Unknown]
  - Therapeutic product effect decreased [Unknown]
  - Coronary artery disease [Unknown]
  - Arthralgia [Unknown]
  - Blood cholesterol increased [Unknown]
  - Injection site pain [Unknown]
  - Pain in extremity [Unknown]
  - Free fatty acids increased [Unknown]
  - Shoulder operation [Unknown]
  - Rheumatoid arthritis [Not Recovered/Not Resolved]
  - Knee arthroplasty [Unknown]
  - Injection site swelling [Unknown]
  - Myalgia [Recovering/Resolving]
  - Glycosylated haemoglobin abnormal [Unknown]
  - Sinusitis [Recovered/Resolved]
  - Drug ineffective [Unknown]

NARRATIVE: CASE EVENT DATE: 2016
